FAERS Safety Report 15573240 (Version 2)
Quarter: 2018Q4

REPORT INFORMATION
  Report Type: Spontaneous
  Country: BR (occurrence: BR)
  Receive Date: 20181101
  Receipt Date: 20181108
  Transmission Date: 20190205
  Serious: Yes (Hospitalization, Other)
  Sender: FDA-Public Use
  Company Number: BR-PFIZER INC-2018439905

PATIENT
  Age: 82 Year
  Sex: Female

DRUGS (4)
  1. TEMODAL [Concomitant]
     Active Substance: TEMOZOLOMIDE
     Dosage: UNK
     Dates: start: 201706
  2. LORAX [Suspect]
     Active Substance: LORAZEPAM
     Dosage: 1 MG, 2X/DAY
     Dates: start: 201810
  3. XELODA [Concomitant]
     Active Substance: CAPECITABINE
     Dosage: UNK
     Dates: start: 201706
  4. LORAX [Suspect]
     Active Substance: LORAZEPAM
     Indication: INSOMNIA
     Dosage: 2 MG, 1X/DAY
     Dates: end: 201808

REACTIONS (2)
  - Breast cancer [Not Recovered/Not Resolved]
  - Hepatic cancer [Not Recovered/Not Resolved]
